FAERS Safety Report 5884597-0 (Version None)
Quarter: 2008Q3

REPORT INFORMATION
  Report Type: 
  Country: None (occurrence: None)
  Receive Date: 20080915
  Receipt Date: 20080915
  Transmission Date: 20090109
  Serious: Yes (Life-Threatening)
  Sender: FDA-Public Use
  Company Number: None

PATIENT
  Age: 58 Year
  Sex: Female
  Weight: 74.8435 kg

DRUGS (2)
  1. ZOMETA [Suspect]
     Indication: NEOPLASM MALIGNANT
     Dosage: 4MG MONTHLY IV
     Route: 042
     Dates: start: 20080910, end: 20080910
  2. ZOMETA [Suspect]
     Indication: PROPHYLAXIS
     Dosage: 4MG MONTHLY IV
     Route: 042
     Dates: start: 20080910, end: 20080910

REACTIONS (2)
  - CHEST DISCOMFORT [None]
  - CHEST PAIN [None]
